FAERS Safety Report 4616174-3 (Version None)
Quarter: 2005Q1

REPORT INFORMATION
  Report Type: 
  Country: None (occurrence: None)
  Receive Date: 20050321
  Receipt Date: 20030716
  Transmission Date: 20050727
  Serious: Yes (Death)
  Sender: FDA-Public Use
  Company Number: 5957

PATIENT
  Age: 85 Year
  Sex: Male

DRUGS (3)
  1. AMIODARONE [Suspect]
     Dosage: 200 MG
     Dates: start: 20020101
  2. AMITRIPTYLINE [Concomitant]
  3. GABAPENTIN [Concomitant]

REACTIONS (3)
  - HYPOTHYROIDISM [None]
  - MYOCLONIC EPILEPSY [None]
  - SUDDEN DEATH [None]
